FAERS Safety Report 5518039-1 (Version None)
Quarter: 2007Q4

REPORT INFORMATION
  Report Type: 
  Country: None (occurrence: None)
  Receive Date: 20071113
  Receipt Date: 20071113
  Transmission Date: 20080405
  Serious: No
  Sender: FDA-Public Use
  Company Number: None

PATIENT
  Age: 58 Year
  Sex: Female
  Weight: 49.8957 kg

DRUGS (1)
  1. MIDAZOLAM HCL [Suspect]
     Indication: COLONOSCOPY
     Dosage: 8MG IV
     Route: 042
     Dates: start: 20071106, end: 20071106

REACTIONS (5)
  - FEELING ABNORMAL [None]
  - INJURY [None]
  - PAIN [None]
  - SCREAMING [None]
  - UNWANTED AWARENESS DURING ANAESTHESIA [None]
